FAERS Safety Report 7931736-3 (Version None)
Quarter: 2011Q4

REPORT INFORMATION
  Report Type: 
  Country: None (occurrence: None)
  Receive Date: 20111121
  Receipt Date: 20111109
  Transmission Date: 20120403
  Serious: Yes (Other)
  Sender: FDA-Public Use
  Company Number: US-GENZYME-CART-1000074

PATIENT

DRUGS (7)
  1. BLOOD PRESSURE MEDICATION (NOS) [Concomitant]
     Route: 065
  2. LUNESTA [Concomitant]
     Route: 065
  3. SIMVASTIN-MEPHA [Concomitant]
     Route: 065
  4. IBUPROFEN [Concomitant]
     Route: 065
  5. CYMBALTA [Concomitant]
     Route: 065
  6. CARTICEL [Suspect]
     Indication: CARTILAGE INJURY
     Dosage: UNK
     Dates: start: 20000601, end: 20000601
  7. ULTRAM [Concomitant]
     Route: 065

REACTIONS (3)
  - JOINT INJURY [None]
  - HAND FRACTURE [None]
  - CARTILAGE INJURY [None]
